FAERS Safety Report 6519125-X (Version None)
Quarter: 2009Q4

REPORT INFORMATION
  Report Type: 
  Country: None (occurrence: None)
  Receive Date: 20091224
  Receipt Date: 20091224
  Transmission Date: 20100525
  Serious: Yes (Hospitalization, Other)
  Sender: FDA-Public Use
  Company Number: None

PATIENT
  Age: 40 Year
  Sex: Female
  Weight: 48.9885 kg

DRUGS (2)
  1. PRISTIQ [Suspect]
     Indication: DYSTHYMIC DISORDER
     Dosage: 50 MG DAILY PO
     Route: 048
     Dates: start: 20090601, end: 20091108
  2. CLONAZEPAM [Concomitant]

REACTIONS (18)
  - BALANCE DISORDER [None]
  - CONFUSIONAL STATE [None]
  - DISORIENTATION [None]
  - DISTURBANCE IN ATTENTION [None]
  - FATIGUE [None]
  - GAIT DISTURBANCE [None]
  - HYPERACUSIS [None]
  - HYPERSENSITIVITY [None]
  - IRRITABILITY [None]
  - MEMORY IMPAIRMENT [None]
  - MENTAL DISORDER [None]
  - MOTION SICKNESS [None]
  - MOTOR DYSFUNCTION [None]
  - MUSCULAR WEAKNESS [None]
  - NEUROMYOPATHY [None]
  - PARAESTHESIA [None]
  - PHOTOPHOBIA [None]
  - VERTIGO [None]
